FAERS Safety Report 9883463 (Version 2)
Quarter: 2014Q1

REPORT INFORMATION
  Report Type: Spontaneous
  Country: US (occurrence: US)
  Receive Date: 20140210
  Receipt Date: 20140303
  Transmission Date: 20141002
  Serious: Yes (Other)
  Sender: FDA-Public Use
  Company Number: US-BIOGENIDEC-2014BI010706

PATIENT
  Age: 60 Year
  Sex: Female

DRUGS (17)
  1. AVONEX [Suspect]
     Indication: MULTIPLE SCLEROSIS
     Route: 030
     Dates: start: 19960601
  2. AVONEX [Suspect]
     Indication: MULTIPLE SCLEROSIS
     Route: 030
     Dates: start: 20080422, end: 2012
  3. LIPITOR [Concomitant]
     Indication: BLOOD CHOLESTEROL INCREASED
     Route: 048
  4. MONTELUCAST [Concomitant]
     Indication: SEASONAL ALLERGY
     Route: 048
  5. AMILODIPINE [Concomitant]
     Indication: BLOOD PRESSURE FLUCTUATION
     Route: 048
  6. CLONIDINE HCL [Concomitant]
     Indication: BLOOD PRESSURE
     Route: 048
  7. PROTONIX [Concomitant]
     Indication: GASTROOESOPHAGEAL REFLUX DISEASE
     Route: 048
  8. OXYCONTIN [Concomitant]
     Indication: PAIN
     Route: 048
  9. OXYCODONE [Concomitant]
     Indication: PAIN
     Route: 048
  10. BACLOFEN [Concomitant]
     Indication: AUTOMATIC BLADDER
     Route: 048
  11. ZANAFLEX [Concomitant]
     Indication: MUSCLE SPASTICITY
     Route: 048
  12. PERPHENZINE [Concomitant]
     Indication: AFFECTIVE DISORDER
     Route: 048
  13. ELAVIL [Concomitant]
     Indication: STRESS
     Route: 048
  14. HYDROXYZINE [Concomitant]
     Indication: PRURITUS
     Route: 048
  15. RECLAST [Concomitant]
     Indication: OSTEOPOROSIS
     Route: 042
  16. PRO AIR HFA [Concomitant]
     Indication: ASTHMA
     Route: 055
  17. ALBUTEROL [Concomitant]
     Indication: ASTHMA
     Route: 055

REACTIONS (2)
  - Convulsion [Recovered/Resolved]
  - Influenza like illness [Recovered/Resolved]
